FAERS Safety Report 4324779-2 (Version None)
Quarter: 2004Q1

REPORT INFORMATION
  Report Type: 
  Country: None (occurrence: None)
  Receive Date: 20040325
  Receipt Date: 20040325
  Transmission Date: 20041129
  Serious: Yes (Other)
  Sender: FDA-Public Use
  Company Number: None

PATIENT
  Age: 13 Year
  Sex: Female
  Weight: 56.6996 kg

DRUGS (1)
  1. ADVAIR DISKUS 250/50 [Suspect]
     Indication: RESPIRATORY DISORDER
     Dosage: 1 PUFF 2 XS DAILY RESPIRATORY
     Route: 055
     Dates: start: 20040322, end: 20040324

REACTIONS (2)
  - HYPERSENSITIVITY [None]
  - TREMOR [None]
